FAERS Safety Report 17875469 (Version 4)
Quarter: 2020Q4

REPORT INFORMATION
  Report Type: Report from Study
  Country: KR (occurrence: KR)
  Receive Date: 20200609
  Receipt Date: 20201029
  Transmission Date: 20210113
  Serious: Yes (Hospitalization)
  Sender: FDA-Public Use
  Company Number: KR-ASTRAZENECA-2020SE71162

PATIENT
  Age: 651 Month
  Sex: Female

DRUGS (74)
  1. CISPLATIN. [Suspect]
     Active Substance: CISPLATIN
     Indication: CERVIX CARCINOMA
     Dosage: 40.0MG/M2 ONCE/SINGLE ADMINISTRATION
     Route: 042
     Dates: start: 20200424, end: 20200424
  2. AKYNZEO [Concomitant]
     Active Substance: NETUPITANT\PALONOSETRON HYDROCHLORIDE
     Indication: PREMEDICATION
     Dosage: ONCE/SINGLE ADMINISTRATION
     Route: 048
     Dates: start: 20200410, end: 20200410
  3. GASTER(FAMOTIDINE) [Concomitant]
     Indication: DYSPEPSIA
     Dosage: 20.0MG ONCE/SINGLE ADMINISTRATION
     Dates: start: 20200424, end: 20200424
  4. GASTER(FAMOTIDINE) [Concomitant]
     Indication: DYSPEPSIA
     Dosage: 20.0MG ONCE/SINGLE ADMINISTRATION
     Dates: start: 20200504, end: 20200504
  5. MVI INJ [Concomitant]
     Indication: SUPPLEMENTATION THERAPY
     Dosage: 5.0ML ONCE/SINGLE ADMINISTRATION
     Dates: start: 20200519, end: 20200519
  6. SANCUSO [Concomitant]
     Active Substance: GRANISETRON
     Indication: NAUSEA
     Route: 062
     Dates: start: 20200519, end: 20200521
  7. LEUCOSTIM [Concomitant]
     Active Substance: FILGRASTIM
     Indication: WHITE BLOOD CELL COUNT DECREASED
     Dosage: 75UG/INHAL
     Route: 058
     Dates: start: 20200528, end: 20200528
  8. TAZOPERAN [Concomitant]
     Indication: FEBRILE NEUTROPENIA
     Dates: start: 20200529
  9. DURVALUMAB. [Suspect]
     Active Substance: DURVALUMAB
     Indication: CERVIX CARCINOMA
     Dosage: 1500.0MG ONCE/SINGLE ADMINISTRATION
     Route: 042
     Dates: start: 20200616, end: 20200616
  10. CISPLATIN. [Suspect]
     Active Substance: CISPLATIN
     Indication: CERVIX CARCINOMA
     Dosage: 40.0MG/M2 ONCE/SINGLE ADMINISTRATION
     Route: 042
     Dates: start: 20200410, end: 20200410
  11. CISPLATIN. [Suspect]
     Active Substance: CISPLATIN
     Indication: CERVIX CARCINOMA
     Dosage: 40.0MG/M2 ONCE/SINGLE ADMINISTRATION
     Route: 042
     Dates: start: 20200417, end: 20200417
  12. PENIRAMIN [Concomitant]
     Indication: PREMEDICATION
     Dosage: 4.0MG ONCE/SINGLE ADMINISTRATION
     Dates: start: 20200410, end: 20200410
  13. PENIRAMIN [Concomitant]
     Indication: PREMEDICATION
     Dosage: 4.0MG ONCE/SINGLE ADMINISTRATION
     Dates: start: 20200417, end: 20200417
  14. DEXAMETHASONE. [Concomitant]
     Active Substance: DEXAMETHASONE
     Indication: PREMEDICATION
     Dosage: 8.0MG ONCE/SINGLE ADMINISTRATION
     Route: 048
     Dates: start: 20200505, end: 20200507
  15. EMEND [Concomitant]
     Active Substance: APREPITANT
     Indication: PREMEDICATION
     Dosage: 125.0MG ONCE/SINGLE ADMINISTRATION
     Route: 048
     Dates: start: 20200424, end: 20200424
  16. EMEND [Concomitant]
     Active Substance: APREPITANT
     Indication: PREMEDICATION
     Dosage: 125.0MG ONCE/SINGLE ADMINISTRATION
     Route: 048
     Dates: start: 20200504, end: 20200504
  17. EMEND [Concomitant]
     Active Substance: APREPITANT
     Indication: PREMEDICATION
     Dosage: 80.0MG ONCE/SINGLE ADMINISTRATION
     Route: 048
     Dates: start: 20200505, end: 20200506
  18. KYTRIL [Concomitant]
     Active Substance: GRANISETRON HYDROCHLORIDE
     Indication: NAUSEA
     Route: 048
     Dates: start: 20200421, end: 20200425
  19. KYTRIL [Concomitant]
     Active Substance: GRANISETRON HYDROCHLORIDE
     Indication: NAUSEA
     Route: 048
     Dates: start: 20200428, end: 20200503
  20. PHENIRAMINE [Concomitant]
     Active Substance: PHENIRAMINE
     Indication: TRANSFUSION
     Dosage: 4.0MG ONCE/SINGLE ADMINISTRATION
     Dates: start: 20200528, end: 20200528
  21. DENOGAN [Concomitant]
     Active Substance: PROPACETAMOL HYDROCHLORIDE
     Indication: FEBRILE NEUTROPENIA
     Dosage: 1000.0MG ONCE/SINGLE ADMINISTRATION
     Dates: start: 20200528, end: 20200528
  22. GRASIN PREFILLED INJ [Concomitant]
     Indication: WHITE BLOOD CELL COUNT DECREASED
     Dosage: ONCE/SINGLE ADMINISTRATION
     Route: 058
     Dates: start: 20200529, end: 20200529
  23. CISPLATIN. [Suspect]
     Active Substance: CISPLATIN
     Indication: CERVIX CARCINOMA
     Dosage: 40.0MG/M2 ONCE/SINGLE ADMINISTRATION
     Route: 042
     Dates: start: 20200512, end: 20200512
  24. BRACHYTHERAPY [Suspect]
     Active Substance: RADIATION THERAPY
     Indication: CERVIX CARCINOMA
     Route: 065
  25. EMEND [Concomitant]
     Active Substance: APREPITANT
     Indication: PREMEDICATION
     Dosage: 80.0MG ONCE/SINGLE ADMINISTRATION
     Route: 048
     Dates: start: 20200425, end: 20200426
  26. K-CONTIN [Concomitant]
     Indication: HYPOKALAEMIA
     Route: 048
     Dates: start: 20200529
  27. NOVASC [Concomitant]
     Indication: HYPERTENSION
     Route: 048
     Dates: start: 20200322
  28. PENIRAMIN [Concomitant]
     Indication: PREMEDICATION
     Dosage: 4.0MG ONCE/SINGLE ADMINISTRATION
     Dates: start: 20200504, end: 20200504
  29. DEXAMETHASONE. [Concomitant]
     Active Substance: DEXAMETHASONE
     Indication: PREMEDICATION
     Dosage: 20.0MG ONCE/SINGLE ADMINISTRATION
     Dates: start: 20200417, end: 20200417
  30. DEXAMETHASONE. [Concomitant]
     Active Substance: DEXAMETHASONE
     Indication: PREMEDICATION
     Dosage: 20.0MG ONCE/SINGLE ADMINISTRATION
     Dates: start: 20200512, end: 20200512
  31. GASTER(FAMOTIDINE) [Concomitant]
     Indication: DYSPEPSIA
     Dosage: 20.0MG ONCE/SINGLE ADMINISTRATION
     Dates: start: 20200410, end: 20200410
  32. KYTRIL [Concomitant]
     Active Substance: GRANISETRON HYDROCHLORIDE
     Indication: NAUSEA
     Dosage: 1.0MG ONCE/SINGLE ADMINISTRATION
     Route: 048
     Dates: start: 20200515, end: 20200519
  33. DENOGAN [Concomitant]
     Active Substance: PROPACETAMOL HYDROCHLORIDE
     Indication: FEBRILE NEUTROPENIA
     Dosage: 1000.0MG ONCE/SINGLE ADMINISTRATION
     Dates: start: 20200530, end: 20200530
  34. FERINJECT [Concomitant]
     Active Substance: FERRIC CARBOXYMALTOSE
     Indication: ANAEMIA
     Dates: start: 20200529, end: 20200529
  35. ALBUMIN 20% [Concomitant]
     Indication: HYPOALBUMINAEMIA
     Dates: start: 20200529, end: 20200529
  36. DURVALUMAB. [Suspect]
     Active Substance: DURVALUMAB
     Indication: CERVIX CARCINOMA
     Dosage: 1500.0MG ONCE/SINGLE ADMINISTRATION
     Route: 042
     Dates: start: 20200714, end: 20200714
  37. DURVALUMAB. [Suspect]
     Active Substance: DURVALUMAB
     Indication: CERVIX CARCINOMA
     Dosage: 1500.0MG ONCE/SINGLE ADMINISTRATION
     Route: 042
     Dates: start: 20200811, end: 20200811
  38. FEROBA-YOU [Concomitant]
     Indication: ANAEMIA
     Dosage: 256.0MG ONCE/SINGLE ADMINISTRATION
     Route: 048
     Dates: start: 20200325, end: 20200416
  39. PENIRAMIN [Concomitant]
     Indication: PREMEDICATION
     Dosage: 4.0MG ONCE/SINGLE ADMINISTRATION
     Dates: start: 20200512, end: 20200512
  40. DEXAMETHASONE. [Concomitant]
     Active Substance: DEXAMETHASONE
     Indication: PREMEDICATION
     Dosage: 8.0MG ONCE/SINGLE ADMINISTRATION
     Route: 048
     Dates: start: 20200411, end: 20200413
  41. HORMONILAN SOL [Concomitant]
     Indication: DECREASED APPETITE
     Route: 048
     Dates: start: 20200511, end: 20200602
  42. DENOGAN [Concomitant]
     Active Substance: PROPACETAMOL HYDROCHLORIDE
     Indication: PYREXIA
     Dosage: 1000.0MG ONCE/SINGLE ADMINISTRATION
     Dates: start: 20200528, end: 20200528
  43. FURTMAN INJ [Concomitant]
     Indication: DECREASED APPETITE
     Dosage: 0.4 ML
     Dates: start: 20200529, end: 20200530
  44. TAMIPOOL INJ [Concomitant]
     Indication: DECREASED APPETITE
     Dosage: 5.0 ML
     Dates: start: 20200529, end: 20200530
  45. DURVALUMAB. [Suspect]
     Active Substance: DURVALUMAB
     Indication: CERVIX CARCINOMA
     Dosage: 1500.0MG ONCE/SINGLE ADMINISTRATION
     Route: 042
     Dates: start: 20200410, end: 20200410
  46. CISPLATIN. [Suspect]
     Active Substance: CISPLATIN
     Indication: CERVIX CARCINOMA
     Dosage: 40.0MG/M2 ONCE/SINGLE ADMINISTRATION
     Route: 042
     Dates: start: 20200504, end: 20200504
  47. EBRT [Suspect]
     Active Substance: RADIATION THERAPY
     Indication: CERVIX CARCINOMA
     Route: 065
  48. DEXAMETHASONE. [Concomitant]
     Active Substance: DEXAMETHASONE
     Indication: PREMEDICATION
     Dosage: 20.0MG ONCE/SINGLE ADMINISTRATION
     Dates: start: 20200424, end: 20200424
  49. DEXAMETHASONE. [Concomitant]
     Active Substance: DEXAMETHASONE
     Indication: PREMEDICATION
     Dosage: 8.0MG ONCE/SINGLE ADMINISTRATION
     Route: 048
     Dates: start: 20200425, end: 20200427
  50. DEXAMETHASONE. [Concomitant]
     Active Substance: DEXAMETHASONE
     Indication: PREMEDICATION
     Dosage: 20.0MG ONCE/SINGLE ADMINISTRATION
     Dates: start: 20200504, end: 20200504
  51. DEXAMETHASONE. [Concomitant]
     Active Substance: DEXAMETHASONE
     Indication: PREMEDICATION
     Dosage: 8.0MG ONCE/SINGLE ADMINISTRATION
     Route: 048
     Dates: start: 20200513, end: 20200515
  52. GASTER(FAMOTIDINE) [Concomitant]
     Indication: DYSPEPSIA
     Dosage: 20.0MG ONCE/SINGLE ADMINISTRATION
     Dates: start: 20200512, end: 20200512
  53. EMEND [Concomitant]
     Active Substance: APREPITANT
     Indication: PREMEDICATION
     Dosage: 125.0MG ONCE/SINGLE ADMINISTRATION
     Route: 048
     Dates: start: 20200417, end: 20200417
  54. EMEND [Concomitant]
     Active Substance: APREPITANT
     Indication: PREMEDICATION
     Dosage: 80.0MG ONCE/SINGLE ADMINISTRATION
     Route: 048
     Dates: start: 20200513, end: 20200514
  55. ALOXI [Concomitant]
     Active Substance: PALONOSETRON HYDROCHLORIDE
     Indication: PREMEDICATION
     Dates: start: 20200512, end: 20200512
  56. ENCOVER SOL [Concomitant]
     Indication: DECREASED APPETITE
     Route: 048
     Dates: start: 20200511, end: 20200524
  57. LEUCOSTIM INJ [Concomitant]
     Indication: WHITE BLOOD CELL COUNT DECREASED
     Dosage: 75.0UG/INHAL ONCE/SINGLE ADMINISTRATION75UG/INHAL
     Route: 058
     Dates: start: 20200530
  58. GODEX(CARNITINE OROTATE 150MG, LIVER EXTRACT ANTITOXIC FRACTION 12.... [Concomitant]
     Indication: GAMMA-GLUTAMYLTRANSFERASE INCREASED
     Dosage: ONCE/SINGLE ADMINISTRATION
     Route: 048
     Dates: start: 20200519, end: 20200601
  59. WINUF PERI INJ [Concomitant]
     Indication: DECREASED APPETITE
     Dosage: 1085.0 ML
     Dates: start: 20200529, end: 20200530
  60. DEXAMETHASONE. [Concomitant]
     Active Substance: DEXAMETHASONE
     Indication: PREMEDICATION
     Dosage: 12.0MG ONCE/SINGLE ADMINISTRATION
     Dates: start: 20200410, end: 20200410
  61. DEXAMETHASONE. [Concomitant]
     Active Substance: DEXAMETHASONE
     Indication: PREMEDICATION
     Dosage: 8.0MG ONCE/SINGLE ADMINISTRATION
     Route: 048
     Dates: start: 20200418, end: 20200420
  62. GASTER(FAMOTIDINE) [Concomitant]
     Indication: DYSPEPSIA
     Dosage: 20.0MG ONCE/SINGLE ADMINISTRATION
     Route: 048
     Dates: start: 20200417, end: 20200623
  63. EMEND [Concomitant]
     Active Substance: APREPITANT
     Indication: PREMEDICATION
     Dosage: 80.0MG ONCE/SINGLE ADMINISTRATION
     Route: 048
     Dates: start: 20200418, end: 20200419
  64. NORZYME [Concomitant]
     Indication: DYSPEPSIA
     Route: 048
     Dates: start: 20200417, end: 20200518
  65. TYLENOL-ER [Concomitant]
     Indication: PAIN
     Route: 048
     Dates: start: 20200417, end: 20200518
  66. LEUCOSTIM INJ [Concomitant]
     Indication: WHITE BLOOD CELL COUNT DECREASED
     Dosage: 75.0UG/INHAL ONCE/SINGLE ADMINISTRATION
     Route: 058
     Dates: start: 20200519, end: 20200519
  67. PHENIRAMINE [Concomitant]
     Active Substance: PHENIRAMINE
     Indication: TRANSFUSION
     Dosage: 4.0MG ONCE/SINGLE ADMINISTRATION
     Dates: start: 20200530, end: 20200530
  68. CACL2 3% [Concomitant]
     Indication: HYPOCALCAEMIA
     Dates: start: 20200529, end: 20200529
  69. PENIRAMIN [Concomitant]
     Indication: PREMEDICATION
     Dosage: 4.0MG ONCE/SINGLE ADMINISTRATION
     Dates: start: 20200424, end: 20200424
  70. EMEND [Concomitant]
     Active Substance: APREPITANT
     Indication: PREMEDICATION
     Dosage: 125.0MG ONCE/SINGLE ADMINISTRATION
     Route: 048
     Dates: start: 20200512, end: 20200512
  71. NORZYME [Concomitant]
     Indication: DYSPEPSIA
     Route: 048
     Dates: start: 20200606, end: 20200617
  72. KYTRIL [Concomitant]
     Active Substance: GRANISETRON HYDROCHLORIDE
     Indication: NAUSEA
     Dosage: 1.0MG ONCE/SINGLE ADMINISTRATION
     Route: 048
     Dates: start: 20200507, end: 20200511
  73. URSA [Concomitant]
     Active Substance: URSODIOL
     Indication: GAMMA-GLUTAMYLTRANSFERASE INCREASED
     Route: 048
     Dates: start: 20200519, end: 20200601
  74. DENOGAN [Concomitant]
     Active Substance: PROPACETAMOL HYDROCHLORIDE
     Indication: PYREXIA
     Dosage: 1000.0MG ONCE/SINGLE ADMINISTRATION
     Dates: start: 20200530, end: 20200530

REACTIONS (1)
  - Febrile neutropenia [Recovered/Resolved]

NARRATIVE: CASE EVENT DATE: 20200529
